FAERS Safety Report 12396719 (Version 1)
Quarter: 2016Q2

REPORT INFORMATION
  Report Type: Spontaneous
  Country: US (occurrence: None)
  Receive Date: 20160523
  Receipt Date: 20160523
  Transmission Date: 20160815
  Serious: No
  Sender: FDA-Public Use
  Company Number: None

PATIENT
  Sex: Female

DRUGS (2)
  1. BRIMONIDINE [Suspect]
     Active Substance: BRIMONIDINE TARTRATE
  2. DORZOLAMIDE [Suspect]
     Active Substance: DORZOLAMIDE

REACTIONS (5)
  - Dry throat [None]
  - Conjunctivitis [None]
  - Dry mouth [None]
  - Heart rate decreased [None]
  - Reaction to preservatives [None]
